FAERS Safety Report 20958507 (Version 7)
Quarter: 2023Q4

REPORT INFORMATION
  Report Type: Spontaneous
  Country: US (occurrence: US)
  Receive Date: 20220614
  Receipt Date: 20231115
  Transmission Date: 20240110
  Serious: No
  Sender: FDA-Public Use
  Company Number: US-BRISTOL-MYERS SQUIBB COMPANY-2022-056750

PATIENT
  Age: 52 Year
  Sex: Female

DRUGS (1)
  1. POMALYST [Suspect]
     Active Substance: POMALIDOMIDE
     Indication: Plasma cell myeloma
     Dosage: DOSE: 2MG DAILY FOR 21 DAYS
     Route: 048
     Dates: start: 2020

REACTIONS (5)
  - Fatigue [Not Recovered/Not Resolved]
  - Hot flush [Unknown]
  - Alopecia [Unknown]
  - Menopause [Unknown]
  - Product dose omission issue [Unknown]

NARRATIVE: CASE EVENT DATE: 20220610
